FAERS Safety Report 12691229 (Version 2)
Quarter: 2016Q4

REPORT INFORMATION
  Report Type: Report from Study
  Country: JP (occurrence: JP)
  Receive Date: 20160826
  Receipt Date: 20161011
  Transmission Date: 20170207
  Serious: Yes (Hospitalization)
  Sender: FDA-Public Use
  Company Number: JP-009507513-1608JPN012486

PATIENT
  Age: 76 Year
  Sex: Female

DRUGS (18)
  1. PITAVASTATIN CALCIUM [Concomitant]
     Active Substance: PITAVASTATIN CALCIUM
     Dosage: UNKNOWN, OD
     Dates: end: 20160205
  2. METGLUCO [Concomitant]
     Active Substance: METFORMIN HYDROCHLORIDE
     Dosage: UNK
     Dates: end: 20151025
  3. ALFACALCIDOL [Concomitant]
     Active Substance: ALFACALCIDOL
     Dosage: UNK
     Dates: end: 20160205
  4. DIBETOS [Concomitant]
     Active Substance: BUFORMIN
     Dosage: UNK
     Dates: start: 20151119, end: 20160205
  5. SELARA [Concomitant]
     Active Substance: EPLERENONE
     Dosage: UNK
     Dates: start: 20151202, end: 20160205
  6. VITAMIN E NICOTINATE [Concomitant]
     Dosage: UNK
     Dates: start: 20151028, end: 20151123
  7. AZILVA [Concomitant]
     Active Substance: AZILSARTAN KAMEDOXOMIL
     Dosage: UNK
     Dates: start: 20151026, end: 20160205
  8. EBRANTIL [Concomitant]
     Active Substance: URAPIDIL
     Dosage: UNK
     Dates: end: 20160107
  9. VITAMIN E NICOTINATE [Concomitant]
     Dosage: UNK
     Dates: end: 20151027
  10. GLACTIV [Suspect]
     Active Substance: SITAGLIPTIN
     Indication: TYPE 2 DIABETES MELLITUS
     Dosage: 50 MG, QD
     Route: 048
     Dates: start: 20150611, end: 20160108
  11. METGLUCO [Concomitant]
     Active Substance: METFORMIN HYDROCHLORIDE
     Dosage: UNK
     Dates: start: 20151026, end: 20151123
  12. ATELEC [Concomitant]
     Active Substance: CILNIDIPINE
     Dosage: UNK
     Dates: start: 20151119, end: 20160205
  13. OPALMON [Concomitant]
     Active Substance: LIMAPROST
     Dosage: UNK
     Dates: end: 20151027
  14. REZALTAS [Concomitant]
     Active Substance: AZELNIDIPINE\OLMESARTAN MEDOXOMIL
     Dosage: UNKNOWN
     Dates: end: 20151025
  15. PRALIA [Concomitant]
     Active Substance: DENOSUMAB
     Dosage: UNK
     Dates: start: 20151019, end: 20160205
  16. FORXIGA [Concomitant]
     Active Substance: DAPAGLIFLOZIN
     Dosage: UNK
     Dates: end: 20160205
  17. ATELEC [Concomitant]
     Active Substance: CILNIDIPINE
     Dosage: UNK
     Dates: start: 20151026, end: 20151118
  18. ZOLPIDEM TARTRATE. [Concomitant]
     Active Substance: ZOLPIDEM TARTRATE
     Dosage: UNK
     Dates: end: 20160205

REACTIONS (2)
  - Cervix carcinoma [Unknown]
  - Hypertension [Recovered/Resolved]

NARRATIVE: CASE EVENT DATE: 20151119
